FAERS Safety Report 18857984 (Version 1)
Quarter: 2021Q1

REPORT INFORMATION
  Report Type: Spontaneous
  Country: US (occurrence: US)
  Receive Date: 20210208
  Receipt Date: 20210208
  Transmission Date: 20210420
  Serious: No
  Sender: FDA-Public Use
  Company Number: US-AUROBINDO-AUR-APL-2020-040586

PATIENT
  Age: 67 Year
  Sex: Female

DRUGS (2)
  1. FAMOTIDINE TABLETS 40MG [Suspect]
     Active Substance: FAMOTIDINE
     Indication: GASTROOESOPHAGEAL REFLUX DISEASE
     Dosage: 40 MILLIGRAM, TWO TIMES A DAY (80 MILLIGRAM ONCE A DAY)
     Route: 065
  2. FAMOTIDINE TABLETS USP 20MG [Suspect]
     Active Substance: FAMOTIDINE
     Indication: GASTROOESOPHAGEAL REFLUX DISEASE
     Dosage: 20 MILLIGRAM, TWO TIMES A DAY (40 MILLIGRAM ONCE A DAY)
     Route: 065

REACTIONS (10)
  - Pharyngitis [Unknown]
  - Bradyphrenia [Unknown]
  - Eructation [Unknown]
  - Slow speech [Unknown]
  - Glomerular filtration rate decreased [Unknown]
  - Blood creatine increased [Unknown]
  - Nausea [Unknown]
  - Dysgeusia [Unknown]
  - Laryngitis [Unknown]
  - Drug ineffective [Unknown]
